FAERS Safety Report 7606922-2 (Version None)
Quarter: 2011Q3

REPORT INFORMATION
  Report Type: 
  Country: None (occurrence: None)
  Receive Date: 20110713
  Receipt Date: 20110705
  Transmission Date: 20111222
  Serious: Yes (Hospitalization)
  Sender: FDA-Public Use
  Company Number: NL-SANOFI-AVENTIS-2011SA038818

PATIENT
  Sex: Male

DRUGS (5)
  1. ZOLEDRONIC ACID [Concomitant]
     Dates: start: 20110517
  2. BUDESONIDE [Suspect]
     Route: 048
     Dates: start: 20110514, end: 20110525
  3. PREDNISOLONE [Suspect]
     Route: 048
  4. CABAZITAXEL [Suspect]
     Route: 042
     Dates: start: 20110516, end: 20110516
  5. GOSERELIN [Concomitant]
     Dates: start: 20110517

REACTIONS (6)
  - ESCHERICHIA TEST POSITIVE [None]
  - STAPHYLOCOCCUS TEST POSITIVE [None]
  - TRANSIENT ISCHAEMIC ATTACK [None]
  - DIARRHOEA [None]
  - SEPSIS [None]
  - DRUG INEFFECTIVE [None]
